FAERS Safety Report 5987457-X (Version None)
Quarter: 2008Q4

REPORT INFORMATION
  Report Type: 
  Country: None (occurrence: None)
  Receive Date: 20081209
  Receipt Date: 20081203
  Transmission Date: 20090506
  Serious: Yes (Death)
  Sender: FDA-Public Use
  Company Number: US-GILEAD-2008-0019324

PATIENT
  Sex: Male
  Weight: 68.1 kg

DRUGS (9)
  1. LETAIRIS [Suspect]
     Indication: PULMONARY ARTERIAL HYPERTENSION
     Route: 048
     Dates: start: 20080211
  2. NORVASC [Concomitant]
  3. DIOVAN [Concomitant]
  4. SOTALOL HCL [Concomitant]
  5. ASPIRIN [Concomitant]
  6. DEMADEX [Concomitant]
  7. ISOSORBIDE [Concomitant]
  8. ZOCOR [Concomitant]
  9. POTASSIUM CHLORIDE [Concomitant]

REACTIONS (1)
  - LEFT VENTRICULAR DYSFUNCTION [None]
